FAERS Safety Report 8215224-5 (Version None)
Quarter: 2012Q1

REPORT INFORMATION
  Report Type: 
  Country: None (occurrence: None)
  Receive Date: 20120316
  Receipt Date: 20120316
  Transmission Date: 20120608
  Serious: Yes (Hospitalization)
  Sender: FDA-Public Use
  Company Number: DE-BAYER-2012-025787

PATIENT
  Sex: Male
  Weight: 115 kg

DRUGS (1)
  1. PRIMOVIST [Suspect]
     Indication: NUCLEAR MAGNETIC RESONANCE IMAGING
     Dosage: 10 ML, ONCE
     Route: 042
     Dates: start: 20120315, end: 20120315

REACTIONS (4)
  - COLD SWEAT [None]
  - NAUSEA [None]
  - UNRESPONSIVE TO STIMULI [None]
  - HYPOTENSION [None]
